FAERS Safety Report 9720223 (Version 2)
Quarter: 2013Q4

REPORT INFORMATION
  Report Type: Report from Study
  Country: BR (occurrence: BR)
  Receive Date: 20131129
  Receipt Date: 20131129
  Transmission Date: 20140711
  Serious: Yes (Hospitalization, Other)
  Sender: FDA-Public Use
  Company Number: BR-ROCHE-1292738

PATIENT
  Sex: Male
  Weight: 83 kg

DRUGS (5)
  1. INTERFERON ALFA-2A [Suspect]
     Indication: PRODUCT USED FOR UNKNOWN INDICATION
     Route: 065
     Dates: start: 2010, end: 2011
  2. INTERFERON ALFA-2A [Suspect]
     Route: 065
     Dates: start: 201309
  3. RIBAVIRIN [Suspect]
     Indication: PRODUCT USED FOR UNKNOWN INDICATION
     Dosage: 3 TABLETS IN THE MORNING, 2 TABLETS AT NIGHT
     Route: 048
     Dates: start: 2010, end: 2011
  4. RIBAVIRIN [Suspect]
     Dosage: 3 TABLETS IN THE MORNING, 2 TABLETS AT NIGHT
     Route: 048
     Dates: start: 201309
  5. INCIVO [Suspect]
     Indication: PRODUCT USED FOR UNKNOWN INDICATION
     Dosage: 2 TABLETS EACH PERIOD OF DAY
     Route: 065

REACTIONS (6)
  - Hypertension [Recovered/Resolved]
  - Drug ineffective [Unknown]
  - Dehydration [Recovered/Resolved]
  - Asthenia [Recovered/Resolved]
  - Gastrointestinal disorder [Recovered/Resolved]
  - Headache [Not Recovered/Not Resolved]
